FAERS Safety Report 4961916-0 (Version None)
Quarter: 2006Q2

REPORT INFORMATION
  Report Type: 
  Country: None (occurrence: None)
  Receive Date: 20060404
  Receipt Date: 20050902
  Transmission Date: 20061013
  Serious: Yes (Death, Hospitalization)
  Sender: FDA-Public Use
  Company Number: US-MERCK-0509USA00556

PATIENT
  Age: 69 Year
  Sex: Female
  Weight: 64 kg

DRUGS (9)
  1. VIOXX [Suspect]
     Indication: ARTHRALGIA
     Route: 048
     Dates: start: 20000101, end: 20000902
  2. VIOXX [Suspect]
     Route: 048
     Dates: start: 20000101, end: 20000902
  3. CYCLOPHOSPHAMIDE [Concomitant]
     Route: 065
  4. PREDNISONE [Concomitant]
     Route: 048
  5. PRILOSEC [Concomitant]
     Route: 065
  6. PHENERGAN INJECTION [Concomitant]
     Route: 065
  7. ESTRATEST [Concomitant]
     Route: 048
  8. QUINACRINE [Concomitant]
     Route: 048
  9. CYCRIN [Concomitant]
     Route: 048

REACTIONS (9)
  - ANAEMIA [None]
  - BONE MARROW FAILURE [None]
  - LUNG INFILTRATION [None]
  - MYOCARDIAL INFARCTION [None]
  - PNEUMONITIS [None]
  - PNEUMOTHORAX [None]
  - PULMONARY FIBROSIS [None]
  - RESPIRATORY FAILURE [None]
  - SYSTEMIC LUPUS ERYTHEMATOSUS [None]
